FAERS Safety Report 25361569 (Version 1)
Quarter: 2025Q2

REPORT INFORMATION
  Report Type: Spontaneous
  Country: IT (occurrence: IT)
  Receive Date: 20250527
  Receipt Date: 20250527
  Transmission Date: 20250716
  Serious: Yes (Life-Threatening, Hospitalization)
  Sender: ACCORD
  Company Number: IT-Accord-486531

PATIENT
  Age: 14 Year
  Sex: Female
  Weight: 55.4 kg

DRUGS (10)
  1. DEXMEDETOMIDINE HYDROCHLORIDE [Interacting]
     Active Substance: DEXMEDETOMIDINE HYDROCHLORIDE
     Indication: Premedication
     Dates: start: 20240312, end: 20240312
  2. PROPOFOL [Interacting]
     Active Substance: PROPOFOL
     Indication: Sedative therapy
     Dates: start: 20240312, end: 20240312
  3. ONDANSETRON [Concomitant]
     Active Substance: ONDANSETRON
     Dates: start: 20240312, end: 20240312
  4. METHOTREXATE [Concomitant]
     Active Substance: METHOTREXATE
     Dates: start: 20240312
  5. THIOGUANINE [Concomitant]
     Active Substance: THIOGUANINE
  6. ACYCLOVIR [Concomitant]
     Active Substance: ACYCLOVIR
  7. AMLODIPINE [Concomitant]
     Active Substance: AMLODIPINE BESYLATE
  8. LANSOPRAZOLE [Concomitant]
     Active Substance: LANSOPRAZOLE
  9. LEUPROLIDE ACETATE [Concomitant]
     Active Substance: LEUPROLIDE ACETATE
  10. DEXMEDETOMIDINE HYDROCHLORIDE [Interacting]
     Active Substance: DEXMEDETOMIDINE HYDROCHLORIDE
     Indication: Sedative therapy
     Dates: start: 20240312, end: 20240312

REACTIONS (4)
  - Apnoea [Unknown]
  - Oxygen saturation decreased [Unknown]
  - Drug-genetic interaction [Unknown]
  - Sedation complication [Unknown]

NARRATIVE: CASE EVENT DATE: 20240312
